FAERS Safety Report 11080587 (Version 1)
Quarter: 2015Q2

REPORT INFORMATION
  Report Type: Spontaneous
  Country: IT (occurrence: IT)
  Receive Date: 20150501
  Receipt Date: 20150501
  Transmission Date: 20150821
  Serious: Yes (Hospitalization)
  Sender: FDA-Public Use
  Company Number: IT-ROCHE-1571004

PATIENT
  Age: 70 Year
  Sex: Female

DRUGS (1)
  1. LUCENTIS [Suspect]
     Active Substance: RANIBIZUMAB
     Indication: MACULAR OEDEMA
     Route: 050
     Dates: start: 20141014

REACTIONS (4)
  - Off label use [Unknown]
  - Pain [Unknown]
  - Blindness unilateral [Unknown]
  - Eye infection [Unknown]

NARRATIVE: CASE EVENT DATE: 20141014
